FAERS Safety Report 24946959 (Version 4)
Quarter: 2025Q1

REPORT INFORMATION
  Report Type: Spontaneous
  Country: EU (occurrence: EU)
  Receive Date: 20250210
  Receipt Date: 20250328
  Transmission Date: 20250408
  Serious: Yes (Hospitalization)
  Sender: Amomed
  Company Number: EU-AMOMED-2024001939

PATIENT

DRUGS (8)
  1. LANDIOLOL HYDROCHLORIDE [Suspect]
     Active Substance: LANDIOLOL HYDROCHLORIDE
     Indication: Atrial flutter
     Route: 042
     Dates: start: 20240805
  2. LANDIOLOL HYDROCHLORIDE [Suspect]
     Active Substance: LANDIOLOL HYDROCHLORIDE
     Indication: Atrial flutter
     Dosage: INTRAVENOUS INJECTION
     Route: 042
  3. LANDIOLOL HYDROCHLORIDE [Suspect]
     Active Substance: LANDIOLOL HYDROCHLORIDE
     Indication: Atrial flutter
     Dosage: INTRAVENOUS INJECTION
     Route: 042
  4. LANDIOLOL HYDROCHLORIDE [Suspect]
     Active Substance: LANDIOLOL HYDROCHLORIDE
     Indication: Atrial flutter
     Route: 042
     Dates: end: 20240807
  5. NOREPINEPHRINE [Concomitant]
     Active Substance: NOREPINEPHRINE
     Indication: Blood pressure decreased
  6. METOPROLOL [Concomitant]
     Active Substance: METOPROLOL
     Indication: Product used for unknown indication
  7. AMIODARONE [Concomitant]
     Active Substance: AMIODARONE
     Indication: Product used for unknown indication
  8. DOBUTAMINE [Concomitant]
     Active Substance: DOBUTAMINE HYDROCHLORIDE
     Indication: Product used for unknown indication

REACTIONS (4)
  - Blood pressure decreased [Recovered/Resolved]
  - Drug ineffective [Unknown]
  - Dizziness [Unknown]
  - Pallor [Unknown]

NARRATIVE: CASE EVENT DATE: 20240806
